FAERS Safety Report 8592760-3 (Version None)
Quarter: 2012Q3

REPORT INFORMATION
  Report Type: 
  Country: None (occurrence: None)
  Receive Date: 20120814
  Receipt Date: 20120813
  Transmission Date: 20120928
  Serious: Yes (Death, Other)
  Sender: FDA-Public Use
  Company Number: CN-ROCHE-1096930

PATIENT
  Age: 53 Year
  Sex: Female

DRUGS (5)
  1. PREDNISONE TAB [Concomitant]
     Indication: LYMPHOMA
  2. CYCLOPHOSPHAMIDE [Concomitant]
     Indication: LYMPHOMA
  3. VINCRISTINE [Concomitant]
     Indication: LYMPHOMA
  4. MABTHERA [Suspect]
     Indication: LYMPHOMA
     Dates: start: 20120611
  5. DOXORUBICIN HYDROCHLORIDE [Concomitant]
     Indication: LYMPHOMA

REACTIONS (3)
  - HISTIOCYTOSIS HAEMATOPHAGIC [None]
  - DISEASE PROGRESSION [None]
  - SEPSIS [None]
